FAERS Safety Report 11473451 (Version 1)
Quarter: 2015Q3

REPORT INFORMATION
  Report Type: Spontaneous
  Country: CA (occurrence: CA)
  Receive Date: 20150908
  Receipt Date: 20150908
  Transmission Date: 20151125
  Serious: Yes (Other)
  Sender: FDA-Public Use
  Company Number: CA-JAZZ-2015-CA-000627

PATIENT
  Sex: Male

DRUGS (1)
  1. XYREM [Suspect]
     Active Substance: SODIUM OXYBATE
     Indication: PRODUCT USED FOR UNKNOWN INDICATION
     Dosage: 2 G, BID

REACTIONS (4)
  - Circumstance or information capable of leading to medication error [Unknown]
  - Product container seal issue [Unknown]
  - Product tampering [Unknown]
  - Product packaging quantity issue [Unknown]
